FAERS Safety Report 7138476-1 (Version None)
Quarter: 2010Q4

REPORT INFORMATION
  Report Type: 
  Country: None (occurrence: None)
  Receive Date: 20101206
  Receipt Date: 20101201
  Transmission Date: 20110411
  Serious: Yes (Death, Other)
  Sender: FDA-Public Use
  Company Number: PHHY2010US53180

PATIENT
  Sex: Male

DRUGS (10)
  1. SANDOSTATIN [Suspect]
     Indication: POST GASTRIC SURGERY SYNDROME
     Dosage: UNK
     Route: 042
     Dates: start: 20100315
  2. SANDOSTATIN [Suspect]
     Dosage: 400 UG, TID
     Route: 058
     Dates: start: 20060101
  3. SANDOSTATIN [Suspect]
     Dosage: 400 MG, TID
     Route: 058
  4. PHENERGAN [Concomitant]
     Dosage: 25 MG, PRN
  5. REGLAN [Concomitant]
     Indication: GASTROOESOPHAGEAL REFLUX DISEASE
     Dosage: 10 MG, HS
  6. ASPIRIN [Concomitant]
     Dosage: 325 MG, 2 TABLETS HS
  7. SYMBYAX [Concomitant]
     Indication: DEPRESSION
     Dosage: UNK
  8. PROTONIX [Concomitant]
     Indication: GASTROOESOPHAGEAL REFLUX DISEASE
     Dosage: 40 MG, BID
  9. TOPROL-XL [Concomitant]
     Indication: HYPERTENSION
     Dosage: 25 MG, BID
  10. ASPIRIN [Concomitant]

REACTIONS (5)
  - ALCOHOLIC LIVER DISEASE [None]
  - AORTIC VALVE INCOMPETENCE [None]
  - AORTIC VALVE SCLEROSIS [None]
  - LEFT VENTRICULAR HYPERTROPHY [None]
  - TRICUSPID VALVE INCOMPETENCE [None]
